FAERS Safety Report 10033058 (Version 1)
Quarter: 2014Q1

REPORT INFORMATION
  Report Type: Report from Study
  Country: CL (occurrence: CL)
  Receive Date: 20140324
  Receipt Date: 20140324
  Transmission Date: 20141002
  Serious: Yes (Other)
  Sender: FDA-Public Use
  Company Number: CL-SA-2014SA032669

PATIENT
  Age: 55 Year
  Sex: Female

DRUGS (1)
  1. TERIFLUNOMIDE [Suspect]
     Indication: MULTIPLE SCLEROSIS
     Route: 065
     Dates: start: 20070101

REACTIONS (1)
  - IIIrd nerve paresis [Not Recovered/Not Resolved]
